FAERS Safety Report 5990655-2 (Version None)
Quarter: 2008Q4

REPORT INFORMATION
  Report Type: 
  Country: None (occurrence: None)
  Receive Date: 20081209
  Receipt Date: 20081124
  Transmission Date: 20090506
  Serious: Yes (Hospitalization)
  Sender: FDA-Public Use
  Company Number: KV200800483

PATIENT
  Age: 73 Year
  Sex: Female
  Weight: 84.4 kg

DRUGS (7)
  1. PROPAFENONE HCL [Suspect]
     Indication: ATRIAL FIBRILLATION
     Dosage: 150 MG, TID, ORAL
     Route: 048
     Dates: start: 20020101, end: 20081019
  2. PROPAFENONE HCL [Suspect]
     Indication: ATRIAL FLUTTER
     Dosage: 150 MG, TID, ORAL
     Route: 048
     Dates: start: 20020101, end: 20081019
  3. ZETIA [Concomitant]
  4. SINGULAIR [Concomitant]
  5. NASONEX [Concomitant]
  6. TOPROL-XL [Concomitant]
  7. AMLODIPINE [Concomitant]

REACTIONS (5)
  - ATRIAL FIBRILLATION [None]
  - DIZZINESS [None]
  - NAUSEA [None]
  - PRODUCT QUALITY ISSUE [None]
  - VOMITING [None]
